FAERS Safety Report 18955704 (Version 20)
Quarter: 2023Q2

REPORT INFORMATION
  Report Type: Spontaneous
  Country: IN (occurrence: IN)
  Receive Date: 20210301
  Receipt Date: 20230614
  Transmission Date: 20230722
  Serious: Yes (Hospitalization, Other)
  Sender: FDA-Public Use
  Company Number: IN-PFIZER INC-2020476720

PATIENT
  Age: 63 Year
  Sex: Female
  Weight: 39.9 kg

DRUGS (19)
  1. PALBOCICLIB [Suspect]
     Active Substance: PALBOCICLIB
     Indication: Breast cancer female
     Dosage: 100 MG, 1X/DAY
     Route: 048
     Dates: start: 20170922
  2. PALBOCICLIB [Suspect]
     Active Substance: PALBOCICLIB
     Dosage: 125MG, CYCLIC (ONCE DAILY D1-21 EVERY 28 DAYS)
     Route: 048
     Dates: start: 20200922
  3. PALBOCICLIB [Suspect]
     Active Substance: PALBOCICLIB
     Dosage: 100 MG, 1X/DAY
     Route: 048
  4. PALBOCICLIB [Suspect]
     Active Substance: PALBOCICLIB
     Dosage: 75 MG, DAILY
     Route: 048
  5. PALBOCICLIB [Suspect]
     Active Substance: PALBOCICLIB
     Indication: Breast cancer female
     Dosage: 75 MG, 1 TAB ONCE DAILY FOR 3 WEEKS THEN 1 WEEK OFF
  6. SODIUM BICARBONATE [Concomitant]
     Active Substance: SODIUM BICARBONATE
     Dosage: GARGLE TID
  7. SHELCAL CT [Concomitant]
     Dosage: 1X/DAY
  8. LETALL [Concomitant]
     Dosage: 2.5 MG, 1X/DAY
  9. METOCLOPRAMIDE HYDROCHLORIDE [Concomitant]
     Active Substance: METOCLOPRAMIDE HYDROCHLORIDE
     Dosage: 1 GM SOS (MAX 3 TABS/DAY)
  10. PYRIGESIC [Concomitant]
     Dosage: 1 GM SOS
  11. ZOLEDRONIC ACID [Concomitant]
     Active Substance: ZOLEDRONIC ACID
     Dosage: 3 MG IN 100 ML NS OVER 20 MINS
     Dates: start: 202202
  12. CALCIUM CARBONATE\CHOLECALCIFEROL [Concomitant]
     Active Substance: CALCIUM CARBONATE\CHOLECALCIFEROL
     Dosage: UNK, 1X/DAY
  13. LETROZOLE [Concomitant]
     Active Substance: LETROZOLE
     Indication: Breast cancer
     Dosage: 1 TAB ONCE DAILY X CONT.
  14. DEXORANGE [Concomitant]
     Dosage: 2 DF, 2X/DAY
  15. CRESP [Concomitant]
     Dosage: 100 UG
     Route: 058
  16. SODIUM CHLORIDE [Concomitant]
     Active Substance: SODIUM CHLORIDE
  17. PAN [Concomitant]
     Dosage: 40 MG, 1X/DAY
  18. CEFTRIAXONE [Concomitant]
     Active Substance: CEFTRIAXONE
     Dosage: 1 G, 2X/DAY
  19. ONDANSETRON HYDROCHLORIDE [Concomitant]
     Active Substance: ONDANSETRON HYDROCHLORIDE
     Dosage: 4 MG, 1X/DAY

REACTIONS (24)
  - Myelosuppression [Recovered/Resolved]
  - Neutrophil count decreased [Unknown]
  - Haemoglobin decreased [Unknown]
  - Spinal cord oedema [Unknown]
  - Blood pressure increased [Unknown]
  - Anaemia [Unknown]
  - Lower respiratory tract infection [Unknown]
  - Blood glucose increased [Unknown]
  - Infection [Unknown]
  - Dyspnoea [Unknown]
  - Pyrexia [Unknown]
  - Oxygen saturation decreased [Unknown]
  - Neoplasm progression [Not Recovered/Not Resolved]
  - Pain [Not Recovered/Not Resolved]
  - Asthenia [Not Recovered/Not Resolved]
  - Dizziness [Unknown]
  - Osteoarthritis [Unknown]
  - Creatinine renal clearance decreased [Unknown]
  - Electrolyte imbalance [Unknown]
  - C-reactive protein increased [Not Recovered/Not Resolved]
  - Heart rate increased [Unknown]
  - Full blood count abnormal [Unknown]
  - Nasopharyngitis [Unknown]
  - Eastern Cooperative Oncology Group performance status worsened [Unknown]

NARRATIVE: CASE EVENT DATE: 20200921
